FAERS Safety Report 15956863 (Version 2)
Quarter: 2019Q1

REPORT INFORMATION
  Report Type: Report from Study
  Country: PL (occurrence: PL)
  Receive Date: 20190213
  Receipt Date: 20190304
  Transmission Date: 20190417
  Serious: Yes (Hospitalization, Other)
  Sender: FDA-Public Use
  Company Number: PL-CHIESI USA, INC.-PL-2019CHI000053

PATIENT
  Age: 0 Day
  Sex: Female
  Weight: 2.95 kg

DRUGS (3)
  1. CUROSURF [Suspect]
     Active Substance: PORACTANT ALFA
     Indication: NEONATAL RESPIRATORY DISTRESS SYNDROME
     Dosage: 1.5 ML, SINGLE
     Route: 039
     Dates: start: 20190123, end: 20190123
  2. CAFFEINE CITRATE. [Concomitant]
     Active Substance: CAFFEINE CITRATE
     Indication: PRODUCT USED FOR UNKNOWN INDICATION
     Dosage: UNK
     Dates: start: 20190123
  3. CUROSURF [Suspect]
     Active Substance: PORACTANT ALFA
     Dosage: 1.5 ML, SINGLE
     Route: 039
     Dates: start: 20190124, end: 20190124

REACTIONS (4)
  - Neonatal hypoxia [Recovered/Resolved]
  - Bradycardia neonatal [Recovered/Resolved]
  - Underdose [Unknown]
  - Infantile apnoea [Recovered/Resolved]

NARRATIVE: CASE EVENT DATE: 20190123
